FAERS Safety Report 6367084-5 (Version None)
Quarter: 2009Q3

REPORT INFORMATION
  Report Type: 
  Country: None (occurrence: None)
  Receive Date: 20090921
  Receipt Date: 20090312
  Transmission Date: 20100115
  Serious: No
  Sender: FDA-Public Use
  Company Number: US-BAYER-200915832NA

PATIENT
  Age: 28 Year
  Sex: Female
  Weight: 78 kg

DRUGS (1)
  1. MIRENA [Suspect]
     Indication: CONTRACEPTION
     Dosage: CONTINUOUS
     Route: 015
     Dates: start: 20081120, end: 20090312

REACTIONS (3)
  - IUCD COMPLICATION [None]
  - POST PROCEDURAL DISCOMFORT [None]
  - POST PROCEDURAL HAEMORRHAGE [None]
